FAERS Safety Report 9586497 (Version 1)
Quarter: 2013Q4

REPORT INFORMATION
  Report Type: Spontaneous
  Country: US (occurrence: US)
  Receive Date: 20131003
  Receipt Date: 20131003
  Transmission Date: 20140711
  Serious: Yes (Hospitalization, Other)
  Sender: FDA-Public Use
  Company Number: US-MERCK-1309USA011533

PATIENT
  Age: 40 Year
  Sex: Female

DRUGS (1)
  1. NASONEX [Suspect]
     Indication: UPPER RESPIRATORY TRACT INFECTION
     Dosage: UNK
     Route: 045
     Dates: start: 201212, end: 201212

REACTIONS (6)
  - Cerebrospinal fluid leakage [Recovering/Resolving]
  - Abortion spontaneous [Unknown]
  - Surgery [Unknown]
  - Epistaxis [Recovered/Resolved]
  - Wrong technique in drug usage process [Unknown]
  - Exposure during pregnancy [Unknown]
